FAERS Safety Report 19825805 (Version 3)
Quarter: 2021Q3

REPORT INFORMATION
  Report Type: Report from Study
  Country: None (occurrence: CH)
  Receive Date: 20210914
  Receipt Date: 20210921
  Transmission Date: 20211014
  Serious: Yes (Death, Other)
  Sender: FDA-Public Use
  Company Number: CH-ABBVIE-21K-151-4077596-00

PATIENT
  Age: 83 Year
  Sex: Female

DRUGS (8)
  1. DUODOPA [Suspect]
     Active Substance: CARBIDOPA\LEVODOPA
     Dosage: MD: 3.5 ML, CRD: 3.8 ML/H, CRN: 2.4 ML/H, ED: 1.0 ML, 24H THERAPY
     Route: 050
     Dates: start: 20210505, end: 20210510
  2. DUODOPA [Suspect]
     Active Substance: CARBIDOPA\LEVODOPA
     Dosage: MD: 3.5 ML, CRD: 3.9 ML/H, CRN: 2.7 ML/H, ED: 1.0 ML, 24H THERAPY
     Route: 050
     Dates: start: 20210510, end: 20210520
  3. DUODOPA [Suspect]
     Active Substance: CARBIDOPA\LEVODOPA
     Indication: PARKINSON^S DISEASE
     Dosage: 1 CASETTE A DAY
     Route: 050
     Dates: start: 201709
  4. DUODOPA [Suspect]
     Active Substance: CARBIDOPA\LEVODOPA
     Dosage: MD: 3.5 ML, CRD: 4.2 ML/H (6?12), CRD: 4.4 ML7H (12?22), CRN:2.7 ML/H, ED: 1.0 ML.
     Route: 050
     Dates: start: 20210621, end: 20210628
  5. DUODOPA [Suspect]
     Active Substance: CARBIDOPA\LEVODOPA
     Route: 050
     Dates: start: 20170821
  6. DUODOPA [Suspect]
     Active Substance: CARBIDOPA\LEVODOPA
     Dosage: MD: 3.5 ML, CRD: 4.0 ML/H, CRN: 2.7 ML/H, ED: 1.0 ML, 24H THERAPY
     Route: 050
     Dates: start: 20210520, end: 20210621
  7. DUODOPA [Suspect]
     Active Substance: CARBIDOPA\LEVODOPA
     Dosage: MD: 3.8 ML, CRD: 4.4 ML/H, CRN: 2.7 ML/H, ED: 1.0 ML, 24H THERAPY
     Route: 050
     Dates: start: 20210628, end: 20210721
  8. DUODOPA [Suspect]
     Active Substance: CARBIDOPA\LEVODOPA
     Dosage: MD: 3.8 ML, CRD: 4.1 ML/H, CRN: 2.7 ML/H, ED: 2.0 ML, 24H THERAPY
     Route: 050
     Dates: start: 20210721, end: 2021

REACTIONS (5)
  - Condition aggravated [Not Recovered/Not Resolved]
  - Asthenia [Unknown]
  - Parkinson^s disease [Unknown]
  - Death [Fatal]
  - Palliative care [Unknown]

NARRATIVE: CASE EVENT DATE: 2021
